FAERS Safety Report 7009782-6 (Version None)
Quarter: 2010Q3

REPORT INFORMATION
  Report Type: 
  Country: None (occurrence: None)
  Receive Date: 20100923
  Receipt Date: 20100913
  Transmission Date: 20110219
  Serious: Yes (Hospitalization)
  Sender: FDA-Public Use
  Company Number: CA-JNJFOC-20100209254

PATIENT
  Sex: Male
  Weight: 75 kg

DRUGS (10)
  1. REMICADE [Suspect]
     Indication: CROHN'S DISEASE
     Route: 042
  2. PREDNISONE [Concomitant]
  3. TYLENOL W/ CODEINE NO. 3 [Concomitant]
     Dosage: PRN
  4. MESALAMINE [Concomitant]
  5. IMURAN [Concomitant]
  6. DILANTIN [Concomitant]
     Indication: CONVULSION
  7. CLOBAZAM [Concomitant]
  8. ACIDOPHILUS [Concomitant]
  9. CALTRATE [Concomitant]
  10. FERROUS SULFATE [Concomitant]

REACTIONS (1)
  - PROCTITIS [None]
